FAERS Safety Report 22361780 (Version 1)
Quarter: 2023Q2

REPORT INFORMATION
  Report Type: Report from Study
  Country: SE (occurrence: SE)
  Receive Date: 20230524
  Receipt Date: 20230524
  Transmission Date: 20230721
  Serious: Yes (Death, Hospitalization)
  Sender: FDA-Public Use
  Company Number: SE-PFIZER INC-PV202300090881

PATIENT

DRUGS (5)
  1. CISPLATIN [Suspect]
     Active Substance: CISPLATIN
     Indication: Squamous cell carcinoma of head and neck
     Dosage: INFUSED OVER 1 H
  2. DOCETAXEL [Suspect]
     Active Substance: DOCETAXEL
     Indication: Squamous cell carcinoma of head and neck
     Dosage: INFUSED OVER 1 H
  3. FLUOROURACIL [Suspect]
     Active Substance: FLUOROURACIL
     Indication: Squamous cell carcinoma of head and neck
     Dosage: ADMINISTERED IN A CONTINUOUS INFUSION OVER 24 H
  4. CETUXIMAB [Suspect]
     Active Substance: CETUXIMAB
     Indication: Squamous cell carcinoma of head and neck
     Dosage: START-UP DOSE, INFUSED OVER 2 H
  5. CETUXIMAB [Suspect]
     Active Substance: CETUXIMAB
     Dosage: INFUSED OVER 60 MIN WEEKLY

REACTIONS (1)
  - Hypoxia [Fatal]
